FAERS Safety Report 7822478-3 (Version None)
Quarter: 2011Q4

REPORT INFORMATION
  Report Type: 
  Country: None (occurrence: None)
  Receive Date: 20111018
  Receipt Date: 20111005
  Transmission Date: 20120403
  Serious: Yes (Hospitalization)
  Sender: FDA-Public Use
  Company Number: JP-PFIZER INC-2011248338

PATIENT
  Age: 72 Year
  Sex: Female

DRUGS (7)
  1. OLMESARTAN MEDOXOMIL [Suspect]
     Indication: HYPERTENSION
     Dosage: 10 MG, UNK
     Route: 048
     Dates: start: 20110526
  2. CALCIUM CARBONATE [Concomitant]
     Dosage: 2 DF, DAILY
     Route: 048
     Dates: start: 20110201
  3. DEPAS [Concomitant]
     Indication: INSOMNIA
     Dosage: 0.5 MG, AS NEEDED
     Route: 048
  4. DENOSUMAB [Suspect]
     Indication: RHEUMATOID ARTHRITIS
     Dosage: 60MG (Q2M OR Q3M OR Q6M) OR PLACEBO
     Route: 058
     Dates: start: 20110222
  5. PLACEBO [Suspect]
     Indication: RHEUMATOID ARTHRITIS
     Dosage: UNK
     Route: 058
     Dates: start: 20110222
  6. METHOTREXATE [Suspect]
     Indication: RHEUMATOID ARTHRITIS
     Dosage: 6 MG, WEEKLY
     Route: 048
     Dates: start: 20110621
  7. AMLODIPINE BESYLATE [Suspect]
     Indication: HYPERTENSION
     Dosage: 5 MG, UNK
     Route: 048
     Dates: start: 20110526

REACTIONS (1)
  - COLONIC POLYP [None]
